FAERS Safety Report 24707393 (Version 1)
Quarter: 2024Q4

REPORT INFORMATION
  Report Type: Report from Study
  Country: CO (occurrence: CO)
  Receive Date: 20241206
  Receipt Date: 20241206
  Transmission Date: 20250114
  Serious: Yes (Life-Threatening, Other)
  Sender: NOVARTIS
  Company Number: CO-002147023-NVSC2024CO225393

PATIENT
  Age: 61 Year
  Sex: Female
  Weight: 58 kg

DRUGS (1)
  1. TASIGNA [Suspect]
     Active Substance: NILOTINIB
     Indication: Chronic myeloid leukaemia
     Dosage: 400 MG, Q12H (4 MONTHS AGO)
     Route: 048
     Dates: start: 20181202

REACTIONS (7)
  - White blood cell count abnormal [Unknown]
  - Lymphocyte count abnormal [Unknown]
  - Philadelphia chromosome positive [Unknown]
  - Full blood count abnormal [Unknown]
  - Granulocytes abnormal [Unknown]
  - Monocyte count abnormal [Unknown]
  - Product supply issue [Unknown]

NARRATIVE: CASE EVENT DATE: 20241029
